FAERS Safety Report 7884204-1 (Version None)
Quarter: 2011Q4

REPORT INFORMATION
  Report Type: 
  Country: None (occurrence: None)
  Receive Date: 20111102
  Receipt Date: 20111027
  Transmission Date: 20120403
  Serious: Yes (Life-Threatening, Other)
  Sender: FDA-Public Use
  Company Number: NZ-ROXANE LABORATORIES, INC.-2011-RO-01545RO

PATIENT
  Age: 15 Year
  Sex: Female

DRUGS (1)
  1. CYCLOPHOSPHAMIDE [Suspect]
     Indication: LUPUS NEPHRITIS
     Route: 048

REACTIONS (4)
  - CYSTITIS HAEMORRHAGIC [None]
  - TOXICITY TO VARIOUS AGENTS [None]
  - RENAL VEIN THROMBOSIS [None]
  - CEREBRAL INFARCTION [None]
